FAERS Safety Report 5551467-7 (Version None)
Quarter: 2007Q4

REPORT INFORMATION
  Report Type: 
  Country: None (occurrence: None)
  Receive Date: 20071212
  Receipt Date: 20071130
  Transmission Date: 20080405
  Serious: Yes (Other)
  Sender: FDA-Public Use
  Company Number: AU-PFIZER INC-2007095664

PATIENT
  Age: 47 Year
  Sex: Female

DRUGS (6)
  1. ZELDOX (CAPSULES) [Suspect]
     Dates: start: 20070831, end: 20071009
  2. SERTRALINE [Suspect]
     Dates: start: 20071010, end: 20071011
  3. RISPERIDONE [Suspect]
  4. EFFEXOR [Concomitant]
  5. SIMVASTATIN [Concomitant]
  6. METFORMIN HCL [Concomitant]

REACTIONS (19)
  - AGITATION [None]
  - ANXIETY [None]
  - BACK PAIN [None]
  - COGWHEEL RIGIDITY [None]
  - DEPRESSED MOOD [None]
  - DIZZINESS [None]
  - ELECTROCARDIOGRAM QT PROLONGED [None]
  - FATIGUE [None]
  - FLANK PAIN [None]
  - INSOMNIA [None]
  - MUSCLE SPASMS [None]
  - NAUSEA [None]
  - NIGHTMARE [None]
  - SUICIDAL IDEATION [None]
  - SYNCOPE [None]
  - TARDIVE DYSKINESIA [None]
  - TREMOR [None]
  - VOMITING [None]
  - WEIGHT INCREASED [None]
